FAERS Safety Report 5377229-1 (Version None)
Quarter: 2007Q2

REPORT INFORMATION
  Report Type: 
  Country: None (occurrence: None)
  Receive Date: 20070530
  Receipt Date: 20070217
  Transmission Date: 20071010
  Serious: No
  Sender: FDA-Public Use
  Company Number: 2007PV030268

PATIENT
  Age: 66 Year
  Sex: Female
  Weight: 91.6266 kg

DRUGS (2)
  1. BYETTA [Suspect]
     Indication: DIABETES MELLITUS NON-INSULIN-DEPENDENT
     Dosage: 5 MCG; BID; SC
     Route: 058
     Dates: start: 20060501
  2. GLYBURIDE [Concomitant]

REACTIONS (4)
  - CONSTIPATION [None]
  - DIARRHOEA [None]
  - VIRAL INFECTION [None]
  - WEIGHT DECREASED [None]
